FAERS Safety Report 16918099 (Version 1)
Quarter: 2019Q4

REPORT INFORMATION
  Report Type: Spontaneous
  Country: US (occurrence: US)
  Receive Date: 20191015
  Receipt Date: 20191015
  Transmission Date: 20200122
  Serious: No
  Sender: FDA-Public Use
  Company Number: US-JNJFOC-20191014816

PATIENT
  Sex: Female
  Weight: 72.64 kg

DRUGS (1)
  1. WOMENS ROGAINE UNSCENTED [Suspect]
     Active Substance: MINOXIDIL
     Indication: ALOPECIA
     Dosage: FULL CAP FULL,NIGHLTY
     Route: 061

REACTIONS (3)
  - Overdose [Unknown]
  - Application site rash [Unknown]
  - Application site urticaria [Unknown]

NARRATIVE: CASE EVENT DATE: 20191006
